FAERS Safety Report 14922281 (Version 1)
Quarter: 2018Q2

REPORT INFORMATION
  Report Type: Spontaneous
  Country: DE (occurrence: DE)
  Receive Date: 20180522
  Receipt Date: 20180522
  Transmission Date: 20180711
  Serious: Yes (Hospitalization)
  Sender: FDA-Public Use
  Company Number: DE-CONCORDIA PHARMACEUTICALS INC.-E2B_00011742

PATIENT
  Age: 72 Year
  Sex: Female
  Weight: 63 kg

DRUGS (10)
  1. PREDNISOLONE. [Suspect]
     Active Substance: PREDNISOLONE
     Dosage: 7.5 MG, 1-0-0-0, TABLETTEN
     Route: 048
  2. PANTOZOL [Concomitant]
     Active Substance: PANTOPRAZOLE SODIUM
     Dosage: 40 MG, 1-0-0-0, TABLETTEN
     Route: 048
  3. NAC 600 [Concomitant]
     Dosage: 600 MG, 1-0-0-0, BRAUSETABLETTEN
     Route: 048
  4. PARACETAMOL [Concomitant]
     Active Substance: ACETAMINOPHEN
     Dosage: 1 G, 1-1-1-1, TABLETTEN
     Route: 048
  5. NEBIVOLOL. [Concomitant]
     Active Substance: NEBIVOLOL
     Dosage: 5 MG, 1-0-1-0, TABLETTEN
     Route: 048
  6. TARGIN 20MG/10MG [Concomitant]
     Active Substance: NALOXONE HYDROCHLORIDE\OXYCODONE HYDROCHLORIDE
     Dosage: 20|10 MG, 1-0-1-0, RETARD-TABLETTEN
     Route: 048
  7. ELIQUIS [Suspect]
     Active Substance: APIXABAN
     Dosage: 5 MG, 1-0-1-0, TABLETTEN
     Route: 048
  8. L-THYROXIN [Concomitant]
     Active Substance: LEVOTHYROXINE SODIUM
     Dosage: 75 ?G, 1-0-0-0, TABLETTEN
     Route: 048
  9. VIANI FORTE [Concomitant]
     Active Substance: FLUTICASONE PROPIONATE\SALMETEROL XINAFOATE
     Dosage: 25|250 ?G, 2-0-2-0, DOSIERAEROSOL
     Route: 055
  10. MIRTAZAPIN [Concomitant]
     Active Substance: MIRTAZAPINE
     Dosage: 30 MG, 0-0-1-0, TABLETTEN
     Route: 048

REACTIONS (1)
  - Haematemesis [Unknown]

NARRATIVE: CASE EVENT DATE: 20170506
